FAERS Safety Report 9383354 (Version 1)
Quarter: 2013Q3

REPORT INFORMATION
  Report Type: Report from Study
  Country: GB (occurrence: GB)
  Receive Date: 20130704
  Receipt Date: 20130704
  Transmission Date: 20140515
  Serious: Yes (Hospitalization)
  Sender: FDA-Public Use
  Company Number: GB-ROCHE-1243469

PATIENT
  Age: 69 Year
  Sex: Male
  Weight: 69.6 kg

DRUGS (7)
  1. BEVACIZUMAB [Suspect]
     Indication: COLON CANCER
     Route: 042
     Dates: start: 20121120
  2. FERROUS SULPHATE [Concomitant]
     Indication: ANAEMIA
     Route: 048
     Dates: start: 201206
  3. DIGOXIN [Concomitant]
     Indication: ATRIAL FIBRILLATION
     Route: 048
  4. FUROSEMIDE [Concomitant]
     Indication: HYPERTENSION
     Route: 048
  5. LANSOPRAZOLE [Concomitant]
     Indication: GASTROOESOPHAGEAL REFLUX DISEASE
     Route: 048
     Dates: start: 20121120
  6. MESALAZINE [Concomitant]
     Indication: COLITIS ULCERATIVE
     Route: 048
  7. DALTEPARIN [Concomitant]
     Indication: DEEP VEIN THROMBOSIS
     Dosage: DOSE: 15000 UNITS
     Route: 058
     Dates: start: 2006

REACTIONS (1)
  - Atrial flutter [Recovered/Resolved]
